FAERS Safety Report 8797490 (Version 2)
Quarter: 2012Q4

REPORT INFORMATION
  Report Type: 
  Country: DE (occurrence: DE)
  Receive Date: 20120920
  Receipt Date: 20121226
  Transmission Date: 20130627
  Serious: Yes (Disabling)
  Sender: FDA-Public Use
  Company Number: PHHY2012DE080363

PATIENT
  Age: 27 Year
  Sex: Female
  Weight: 53 kg

DRUGS (3)
  1. TOBI [Suspect]
     Indication: CYSTIC FIBROSIS
     Dosage: 1 DF, QD
     Dates: start: 2007
  2. TOBI [Suspect]
     Dosage: 2 DF, QD
     Dates: start: 2012
  3. TOBI PODHALER [Suspect]
     Dosage: 4 DF, BID

REACTIONS (2)
  - Ototoxicity [Unknown]
  - Drug level increased [Unknown]
